FAERS Safety Report 24442657 (Version 2)
Quarter: 2024Q4

REPORT INFORMATION
  Report Type: Report from Study
  Country: US (occurrence: US)
  Receive Date: 20241016
  Receipt Date: 20241017
  Transmission Date: 20250115
  Serious: No
  Sender: ROCHE
  Company Number: US-ROCHE-3560060

PATIENT
  Age: 53 Year
  Sex: Male

DRUGS (2)
  1. EMICIZUMAB [Suspect]
     Active Substance: EMICIZUMAB
     Indication: Factor VIII deficiency
     Route: 058
  2. VALOCTOCOGENE ROXAPARVOVEC [Suspect]
     Active Substance: VALOCTOCOGENE ROXAPARVOVEC
     Indication: Factor VIII deficiency
     Route: 065

REACTIONS (2)
  - Traumatic haemorrhage [Unknown]
  - Spontaneous haemorrhage [Unknown]
